FAERS Safety Report 8512894-9 (Version None)
Quarter: 2012Q3

REPORT INFORMATION
  Report Type: 
  Country: None (occurrence: None)
  Receive Date: 20120705
  Receipt Date: 20120622
  Transmission Date: 20120928
  Serious: Yes (Other)
  Sender: FDA-Public Use
  Company Number: 2012SP022501

PATIENT
  Age: 61 Year
  Sex: Female
  Weight: 53 kg

DRUGS (12)
  1. PEGINTERFERON ALFA-2B [Suspect]
     Indication: HEPATITIS C
     Dosage: 0.76 MCG/KG;QW;SC 0.76 MCG;KG;QW;SC
     Route: 058
     Dates: start: 20120328, end: 20120328
  2. PEGINTERFERON ALFA-2B [Suspect]
     Indication: HEPATITIS C
     Dosage: 0.76 MCG/KG;QW;SC 0.76 MCG;KG;QW;SC
     Route: 058
     Dates: start: 20120229, end: 20120229
  3. TELAVIC (ANTIVIRALS NOS) (1500 MG) [Suspect]
     Indication: HEPATITIS C
     Dosage: 1500 MG;QD;PO 750 MG;QD;PO
     Route: 048
     Dates: start: 20120229, end: 20120306
  4. TELAVIC (ANTIVIRALS NOS) (1500 MG) [Suspect]
     Indication: HEPATITIS C
     Dosage: 1500 MG;QD;PO 750 MG;QD;PO
     Route: 048
     Dates: start: 20120328, end: 20120331
  5. URSO 250 [Concomitant]
  6. PEGASYS [Concomitant]
  7. XYZAL [Concomitant]
  8. ADALAT CC [Concomitant]
  9. VITAMIN B12 [Concomitant]
  10. PRAVASTATIN [Concomitant]
  11. REBETOL [Suspect]
     Indication: HEPATITIS C
     Dosage: 400 MG;QD;PO 400 MG;QD;PO
     Route: 048
     Dates: start: 20120229, end: 20120306
  12. REBETOL [Suspect]
     Indication: HEPATITIS C
     Dosage: 400 MG;QD;PO 400 MG;QD;PO
     Route: 048
     Dates: start: 20120328, end: 20120331

REACTIONS (3)
  - RASH [None]
  - ASCITES [None]
  - PLEURAL EFFUSION [None]
